FAERS Safety Report 18508096 (Version 7)
Quarter: 2023Q4

REPORT INFORMATION
  Report Type: Report from Study
  Country: CO (occurrence: CO)
  Receive Date: 20201116
  Receipt Date: 20231214
  Transmission Date: 20240110
  Serious: Yes (Other)
  Sender: FDA-Public Use
  Company Number: CO-TAKEDA-CO201847425

PATIENT
  Age: 47 Year
  Sex: Female
  Weight: 86 kg

DRUGS (3)
  1. VELAGLUCERASE ALFA [Suspect]
     Active Substance: VELAGLUCERASE ALFA
     Indication: Gaucher^s disease
     Dosage: 4800 INTERNATIONAL UNIT, Q2WEEKS
     Route: 042
     Dates: start: 20141028
  2. VELAGLUCERASE ALFA [Suspect]
     Active Substance: VELAGLUCERASE ALFA
     Dosage: 4800 INTERNATIONAL UNIT, 2/MONTH
     Route: 042
     Dates: start: 20151028
  3. VELAGLUCERASE ALFA [Suspect]
     Active Substance: VELAGLUCERASE ALFA
     Dosage: 4800 INTERNATIONAL UNIT, Q2WEEKS
     Route: 042

REACTIONS (25)
  - Hepatic haemangioma rupture [Unknown]
  - Pain in extremity [Not Recovered/Not Resolved]
  - Weight increased [Not Recovered/Not Resolved]
  - Suspected COVID-19 [Unknown]
  - Hepatomegaly [Unknown]
  - Cholelithiasis [Unknown]
  - Skin lesion [Unknown]
  - Obesity [Unknown]
  - Arthralgia [Not Recovered/Not Resolved]
  - Bone pain [Not Recovered/Not Resolved]
  - Feeling abnormal [Not Recovered/Not Resolved]
  - Weight decreased [Unknown]
  - Insomnia [Not Recovered/Not Resolved]
  - Fall [Recovered/Resolved]
  - Gait disturbance [Recovered/Resolved]
  - Hordeolum [Not Recovered/Not Resolved]
  - Eye irritation [Not Recovered/Not Resolved]
  - Influenza [Not Recovered/Not Resolved]
  - Treatment noncompliance [Unknown]
  - Dizziness [Not Recovered/Not Resolved]
  - Hypersensitivity [Not Recovered/Not Resolved]
  - Nausea [Unknown]
  - Headache [Not Recovered/Not Resolved]
  - Incorrect dose administered [Unknown]
  - Product prescribing error [Unknown]

NARRATIVE: CASE EVENT DATE: 20181201
